FAERS Safety Report 12243818 (Version 2)
Quarter: 2016Q2

REPORT INFORMATION
  Report Type: Spontaneous
  Country: AT (occurrence: AT)
  Receive Date: 20160406
  Receipt Date: 20160426
  Transmission Date: 20160815
  Serious: Yes (Death, Hospitalization, Other)
  Sender: FDA-Public Use
  Company Number: PHHY2016AT044627

PATIENT
  Sex: Male

DRUGS (7)
  1. VIDAZA [Concomitant]
     Active Substance: AZACITIDINE
     Indication: PRODUCT USED FOR UNKNOWN INDICATION
     Dosage: 1 CYCLES
     Route: 065
     Dates: start: 20160125
  2. LITALIR [Concomitant]
     Active Substance: HYDROXYUREA
     Indication: PRODUCT USED FOR UNKNOWN INDICATION
     Dosage: UNK
     Route: 065
     Dates: start: 201403
  3. VIDAZA [Concomitant]
     Active Substance: AZACITIDINE
     Dosage: 2 CYCLE
     Route: 065
     Dates: start: 20160222
  4. ERYTHROCYTES [Concomitant]
     Active Substance: HUMAN RED BLOOD CELL
     Indication: PRIMARY MYELOFIBROSIS
     Dosage: UNK
     Route: 065
  5. EXJADE [Suspect]
     Active Substance: DEFERASIROX
     Indication: PRODUCT USED FOR UNKNOWN INDICATION
     Route: 065
  6. GABAPENTIN. [Concomitant]
     Active Substance: GABAPENTIN
     Indication: PRODUCT USED FOR UNKNOWN INDICATION
     Route: 065
  7. JAKAFI [Suspect]
     Active Substance: RUXOLITINIB
     Indication: MYELOFIBROSIS
     Dosage: 15 MG, BID (2 X 15 MG)
     Route: 065
     Dates: start: 201408

REACTIONS (11)
  - Myelofibrosis [Unknown]
  - Splenomegaly [Unknown]
  - Pleural effusion [Unknown]
  - Death [Fatal]
  - Asthenia [Unknown]
  - Night sweats [Unknown]
  - Waist circumference increased [Unknown]
  - General physical health deterioration [Unknown]
  - Haemorrhage [Unknown]
  - Septic shock [Unknown]
  - Dyspnoea exertional [Unknown]

NARRATIVE: CASE EVENT DATE: 201509
